FAERS Safety Report 7337235-4 (Version None)
Quarter: 2011Q1

REPORT INFORMATION
  Report Type: 
  Country: None (occurrence: None)
  Receive Date: 20110308
  Receipt Date: 20110301
  Transmission Date: 20110831
  Serious: Yes (Death)
  Sender: FDA-Public Use
  Company Number: PHHY2011US17890

PATIENT
  Sex: Female

DRUGS (5)
  1. FANAPT [Suspect]
     Indication: SCHIZOPHRENIA
     Dosage: UNK
     Route: 048
     Dates: start: 20110206
  2. BENZTROPINE MESYLATE [Concomitant]
     Indication: EXTRAPYRAMIDAL DISORDER
     Dosage: 1 MG, BID
     Route: 048
  3. TEMAZEPAM [Concomitant]
     Dosage: 15 MG, QHS
  4. FANAPT [Suspect]
     Dosage: 6 MG, BID
     Route: 048
     Dates: start: 20110209, end: 20110214
  5. LORAZEPAM [Concomitant]
     Dosage: 0.5 MG, BID
     Route: 048

REACTIONS (1)
  - PULMONARY EMBOLISM [None]
